FAERS Safety Report 10596356 (Version 1)
Quarter: 2014Q4

REPORT INFORMATION
  Report Type: Spontaneous
  Country: US (occurrence: US)
  Receive Date: 20141120
  Receipt Date: 20141120
  Transmission Date: 20150529
  Serious: Yes (Death, Hospitalization, Other)
  Sender: FDA-Public Use
  Company Number: US-GILEAD-2014-0123520

PATIENT
  Age: 67 Year
  Sex: Male

DRUGS (1)
  1. LETAIRIS [Suspect]
     Active Substance: AMBRISENTAN
     Indication: LUNG DISORDER
     Dosage: 10 MG, QD
     Route: 065
     Dates: start: 20130212, end: 20141115

REACTIONS (4)
  - Pulmonary oedema [Fatal]
  - Vomiting [Fatal]
  - Pulmonary sepsis [Fatal]
  - Cardiac disorder [Fatal]
